FAERS Safety Report 4474050-3 (Version None)
Quarter: 2004Q4

REPORT INFORMATION
  Report Type: 
  Country: None (occurrence: None)
  Receive Date: 20041008
  Receipt Date: 20040927
  Transmission Date: 20050328
  Serious: Yes (Death)
  Sender: FDA-Public Use
  Company Number: 2004070909

PATIENT
  Age: 75 Year

DRUGS (3)
  1. AMLODIPINE [Suspect]
     Indication: ILL-DEFINED DISORDER
     Dates: end: 20030101
  2. APOREX (DEXTROPROPOXYPHENE HYDROCHLORIDE, PARACETAMOL) [Suspect]
     Indication: ILL-DEFINED DISORDER
     Dates: end: 20030101
  3. ZOLPIDEM (ZOLPIDEM) [Suspect]
     Indication: ILL-DEFINED DISORDER
     Dates: end: 20030101

REACTIONS (2)
  - COMPLETED SUICIDE [None]
  - OVERDOSE [None]
